FAERS Safety Report 10220195 (Version 1)
Quarter: 2014Q2

REPORT INFORMATION
  Report Type: Spontaneous
  Country: PH (occurrence: PH)
  Receive Date: 20140605
  Receipt Date: 20140605
  Transmission Date: 20141212
  Serious: Yes (Hospitalization, Other)
  Sender: FDA-Public Use
  Company Number: PH-009507513-1406PHL002508

PATIENT
  Age: 85 Year
  Sex: Female

DRUGS (1)
  1. FOSAVANCE [Suspect]
     Dosage: 1 DF, QW
     Route: 048

REACTIONS (2)
  - Femur fracture [Unknown]
  - Drug ineffective [Unknown]
